FAERS Safety Report 19823878 (Version 3)
Quarter: 2021Q4

REPORT INFORMATION
  Report Type: Spontaneous
  Country: US (occurrence: US)
  Receive Date: 20210914
  Receipt Date: 20211111
  Transmission Date: 20220303
  Serious: No
  Sender: FDA-Public Use
  Company Number: US-JNJFOC-20210915426

PATIENT
  Age: 78 Year
  Sex: Female
  Weight: 84.898 kg

DRUGS (24)
  1. STELARA [Suspect]
     Active Substance: USTEKINUMAB
     Indication: Crohn^s disease
     Dosage: DUE FOR INJECTION ON 9.23.2021
     Route: 042
     Dates: start: 20210721
  2. STELARA [Suspect]
     Active Substance: USTEKINUMAB
     Route: 058
     Dates: start: 202109
  3. ALBUTEROL SULFATE [Concomitant]
     Active Substance: ALBUTEROL SULFATE
  4. AMLODIPINE [Concomitant]
     Active Substance: AMLODIPINE BESYLATE
  5. ASACOL HD [Concomitant]
     Active Substance: MESALAMINE
     Dosage: TAKE 3 TABLETS BY MOUTH TWICE A DAY AS DIRECTED.
  6. CALCIUM CARBONATE [Concomitant]
     Active Substance: CALCIUM CARBONATE
  7. VITAMIN D3 [Concomitant]
     Active Substance: CHOLECALCIFEROL
  8. COLESTIPOL [Concomitant]
     Active Substance: COLESTIPOL
  9. VITAMIN B12 [Concomitant]
     Active Substance: CYANOCOBALAMIN
     Dosage: INJECT EVERY 4 WEEKS AS DIRECTED
  10. ESTRACE [Concomitant]
     Active Substance: ESTRADIOL
     Dosage: APPLY AS DIRECTED
  11. LIVALO [Concomitant]
     Active Substance: PITAVASTATIN CALCIUM
  12. LORAZEPAM [Concomitant]
     Active Substance: LORAZEPAM
  13. MELOXICAM [Concomitant]
     Active Substance: MELOXICAM
  14. MESALAMINE [Concomitant]
     Active Substance: MESALAMINE
  15. METOPROLOL SUCCINATE [Concomitant]
     Active Substance: METOPROLOL SUCCINATE
  16. MYRBETRIQ [Concomitant]
     Active Substance: MIRABEGRON
  17. FISH OIL\OMEGA-3 FATTY ACIDS [Concomitant]
     Active Substance: FISH OIL\OMEGA-3 FATTY ACIDS
  18. ONDANSETRON HYDROCHLORIDE [Concomitant]
     Active Substance: ONDANSETRON HYDROCHLORIDE
     Dosage: TAKE 1 TABLETS(20MG) BY MOUTH DAILY. TAPER BY 1 TABLET (5MG) EVERY WEEK UNTIL COMPLETED
  19. RESTASIS [Concomitant]
     Active Substance: CYCLOSPORINE
     Dosage: USE TWICE A DAY AS DIRECTED
  20. SPIRIVA RESPIMAT [Concomitant]
     Active Substance: TIOTROPIUM BROMIDE
  21. SYMBICORT [Concomitant]
     Active Substance: BUDESONIDE\FORMOTEROL FUMARATE DIHYDRATE
  22. SYNTHROID [Concomitant]
     Active Substance: LEVOTHYROXINE SODIUM
  23. VENTOLIN HFA [Concomitant]
     Active Substance: ALBUTEROL SULFATE
     Dosage: INHALE 1 PUFF BY MOUTH ONCE A DAT AS DIRECTED
  24. VITAMIN B6 [Concomitant]
     Active Substance: PYRIDOXINE HYDROCHLORIDE

REACTIONS (1)
  - Pain in extremity [Recovering/Resolving]

NARRATIVE: CASE EVENT DATE: 20210101
